FAERS Safety Report 11086251 (Version 2)
Quarter: 2015Q2

REPORT INFORMATION
  Report Type: Spontaneous
  Country: KR (occurrence: KR)
  Receive Date: 20150503
  Receipt Date: 20150528
  Transmission Date: 20150821
  Serious: Yes (Hospitalization)
  Sender: FDA-Public Use
  Company Number: KR-OTSUKA PHARMACEUTICAL CO.-2015_000049

PATIENT
  Age: 71 Year
  Sex: Male
  Weight: 74.3 kg

DRUGS (28)
  1. BENZYDAMINE HYDROCHLORIDE [Concomitant]
     Active Substance: BENZYDAMINE HYDROCHLORIDE
     Indication: PROPHYLAXIS
  2. IBUPROFEN. [Concomitant]
     Active Substance: IBUPROFEN
     Dosage: 200 MG, QD, 1 IN 1 DAY
     Route: 048
     Dates: start: 20150415, end: 20150421
  3. KETOROLAC TROMETHAMINE. [Concomitant]
     Active Substance: KETOROLAC TROMETHAMINE
     Indication: TOOTHACHE
     Dosage: 30 MG, QD, 1 IN 1 DAY
     Route: 048
     Dates: start: 20150413, end: 20150429
  4. OXYCODONE HYDROCHLORIDE. [Concomitant]
     Active Substance: OXYCODONE HYDROCHLORIDE
     Indication: TOOTHACHE
     Dosage: 5 MG, QD, 4 IN 1 DAY
     Route: 048
     Dates: start: 20150414, end: 20150414
  5. IBUPROFEN. [Concomitant]
     Active Substance: IBUPROFEN
     Indication: TOOTHACHE
     Dosage: UNK, 3 IN 1 DAY
     Route: 048
     Dates: start: 20150412, end: 20150413
  6. SPORANOX [Concomitant]
     Active Substance: ITRACONAZOLE\SODIUM CHLORIDE
     Indication: ANTIBIOTIC PROPHYLAXIS
     Dosage: 100 MG, QD, 1 IN 1 DAY
     Route: 048
     Dates: start: 20150330, end: 20150427
  7. CRAVIT [Concomitant]
     Active Substance: LEVOFLOXACIN
     Indication: ANTIBIOTIC PROPHYLAXIS
     Dosage: 500 MG, QD, 1 IN 1 DAY
     Route: 048
     Dates: start: 20150330, end: 20150403
  8. DACOGEN [Suspect]
     Active Substance: DECITABINE
     Indication: MYELODYSPLASTIC SYNDROME
     Dosage: 20 MG/M2, 1 IN 1 DAY
     Route: 042
     Dates: start: 20150330, end: 20150403
  9. BENZYDAMINE HYDROCHLORIDE [Concomitant]
     Active Substance: BENZYDAMINE HYDROCHLORIDE
     Indication: TOOTHACHE
     Dosage: 20 ML, UNK
     Route: 048
     Dates: start: 20150410, end: 20150513
  10. ESOMEPRAZOLE [Concomitant]
     Active Substance: ESOMEPRAZOLE
     Indication: DECREASED APPETITE
     Dosage: 20 MG,1 IN 1 DAY
     Route: 048
     Dates: start: 20150323
  11. BISACODYL. [Concomitant]
     Active Substance: BISACODYL
     Indication: CONSTIPATION
     Dosage: 20 MG, IN 1 DAY
     Route: 048
     Dates: start: 20150416, end: 20150429
  12. MAGNESIUM OXIDE. [Concomitant]
     Active Substance: MAGNESIUM OXIDE
     Indication: CONSTIPATION
     Dosage: 500 MG, UNK
     Route: 048
     Dates: start: 20150416, end: 20150427
  13. MEROPENEM. [Concomitant]
     Active Substance: MEROPENEM
     Indication: PROPHYLAXIS
     Dosage: 1000 MG, UNK
     Route: 042
     Dates: start: 20150419, end: 20150423
  14. GINKO BILOBA [Concomitant]
     Active Substance: GINKGO
     Indication: HYPERTENSION
     Dosage: 80 MG, 1 IN 1 DAY
     Route: 048
  15. VALSARTAN. [Concomitant]
     Active Substance: VALSARTAN
     Indication: HYPERTENSION
     Dosage: 80 MG, 1 IN 1 DAY
     Route: 042
  16. CASPOFUNGIN ACETATE [Concomitant]
     Active Substance: CASPOFUNGIN ACETATE
     Indication: PRODUCT USED FOR UNKNOWN INDICATION
     Dosage: UNK, 1 VIAL
     Route: 042
     Dates: start: 20150420, end: 20150508
  17. PROPACETAMOL HYDROCHLORIDE [Concomitant]
     Active Substance: PROPACETAMOL HYDROCHLORIDE
     Indication: TOOTHACHE
     Dosage: UNK, 1 IN
     Route: 042
     Dates: start: 20150413, end: 20150428
  18. ACETAMINOPHEN. [Concomitant]
     Active Substance: ACETAMINOPHEN
     Indication: TOOTHACHE
     Dosage: 650 MG, QD, 1 IN 1 DAY
     Route: 048
     Dates: start: 20150411, end: 20150412
  19. VANCOMYCIN HYDROCHLORIDE. [Concomitant]
     Active Substance: VANCOMYCIN HYDROCHLORIDE
     Indication: PROPHYLAXIS
     Dosage: 1 IN 2 DAY
     Route: 042
     Dates: start: 20150415, end: 20150427
  20. POLYCARBOPHIL CALCIUM [Concomitant]
     Active Substance: CALCIUM POLYCARBOPHIL
     Indication: CONSTIPATION
     Dosage: 625 MG, UNK
     Route: 048
     Dates: start: 20150427
  21. IMIPENEM/CILASTATINE [Concomitant]
     Indication: PRODUCT USED FOR UNKNOWN INDICATION
     Dosage: 500 MG, UNK
     Route: 042
     Dates: start: 20150424, end: 20150508
  22. LEVOFLOXACIN. [Concomitant]
     Active Substance: LEVOFLOXACIN
     Indication: PROPHYLAXIS
     Dosage: 500 MG, UNK
     Route: 042
     Dates: start: 20150508
  23. TAMSULOSIN HYDROCHLORIDE. [Concomitant]
     Active Substance: TAMSULOSIN HYDROCHLORIDE
     Indication: HYPERPLASIA
     Dosage: 0.2 MG, 2 IN
     Route: 048
     Dates: start: 20150424
  24. KETOROLAC TROMETHAMINE. [Concomitant]
     Active Substance: KETOROLAC TROMETHAMINE
     Indication: PAIN
  25. OXYCODONE HYDROCHLORIDE. [Concomitant]
     Active Substance: OXYCODONE HYDROCHLORIDE
     Indication: PAIN
  26. PROPACETAMOL HYDROCHLORIDE [Concomitant]
     Active Substance: PROPACETAMOL HYDROCHLORIDE
     Indication: PAIN
     Dosage: UNK, 1 IN 1 DAY
     Route: 042
     Dates: start: 20150418, end: 20150428
  27. TAMSULOSIN HYDROCHLORIDE. [Concomitant]
     Active Substance: TAMSULOSIN HYDROCHLORIDE
     Indication: PROSTATIC DISORDER
  28. TEICOPLANIN [Concomitant]
     Active Substance: TEICOPLANIN
     Indication: PROPHYLAXIS
     Dosage: 400 MG, 1 IN
     Route: 042
     Dates: start: 20150428, end: 20150508

REACTIONS (1)
  - Pancytopenia [Recovered/Resolved]

NARRATIVE: CASE EVENT DATE: 20150410
